FAERS Safety Report 21780369 (Version 2)
Quarter: 2023Q1

REPORT INFORMATION
  Report Type: Spontaneous
  Country: JP (occurrence: JP)
  Receive Date: 20221227
  Receipt Date: 20230227
  Transmission Date: 20230417
  Serious: Yes (Death, Hospitalization, Other)
  Sender: FDA-Public Use
  Company Number: JP-KYOWAKIRIN-2022AKK019647

PATIENT
  Sex: Female

DRUGS (9)
  1. PEGFILGRASTIM [Suspect]
     Active Substance: PEGFILGRASTIM
     Indication: Colony stimulating factor therapy
     Dosage: 3.6 MILLIGRAM
     Route: 058
  2. DOXORUBICIN HYDROCHLORIDE [Suspect]
     Active Substance: DOXORUBICIN HYDROCHLORIDE
     Indication: Breast cancer
     Dosage: 93.78 MILLIGRAM, Q2WK
     Route: 042
     Dates: start: 20201001, end: 20201030
  3. CYCLOPHOSPHAMIDE [Suspect]
     Active Substance: CYCLOPHOSPHAMIDE
     Indication: Breast cancer
     Dosage: 939.8 MILLIGRAM, Q2WK
     Route: 042
     Dates: start: 20201001, end: 20201030
  4. ALOXI [Concomitant]
     Active Substance: PALONOSETRON HYDROCHLORIDE
     Indication: Prophylaxis of nausea and vomiting
     Dosage: 0.75 MILLIGRAM, Q2WK
     Route: 042
     Dates: start: 20201001, end: 20201030
  5. DEXAMETHASONE SODIUM PHOSPHATE [Concomitant]
     Active Substance: DEXAMETHASONE SODIUM PHOSPHATE
     Indication: Prophylaxis of nausea and vomiting
     Dosage: 9.9 MILLIGRAM, Q2WK
     Route: 042
     Dates: start: 20201001, end: 20201030
  6. EMEND [Concomitant]
     Active Substance: APREPITANT
     Indication: Prophylaxis of nausea and vomiting
     Dosage: 80 MILLIGRAM, Q2WK
     Route: 048
     Dates: start: 20201002, end: 20201101
  7. DECADRON [Concomitant]
     Active Substance: DEXAMETHASONE
     Indication: Prophylaxis of nausea and vomiting
     Dosage: 8 MILLIGRAM, Q2WK
     Route: 048
     Dates: start: 20201002, end: 20201102
  8. VALACYCLOVIR HYDROCHLORIDE [Concomitant]
     Active Substance: VALACYCLOVIR HYDROCHLORIDE
     Indication: Infection prophylaxis
     Dosage: 500 MILLIGRAM, QD
     Route: 048
     Dates: start: 20201001
  9. MAGNESIUM OXIDE [Concomitant]
     Active Substance: MAGNESIUM OXIDE
     Indication: Constipation prophylaxis
     Dosage: 330 MILLIGRAM, TID
     Route: 048
     Dates: start: 20201001

REACTIONS (2)
  - Interstitial lung disease [Recovered/Resolved]
  - Metastases to liver [Fatal]

NARRATIVE: CASE EVENT DATE: 20201113
